FAERS Safety Report 5912499-X (Version None)
Quarter: 2008Q4

REPORT INFORMATION
  Report Type: 
  Country: None (occurrence: None)
  Receive Date: 20081007
  Receipt Date: 20081007
  Transmission Date: 20090506
  Serious: No
  Sender: FDA-Public Use
  Company Number: None

PATIENT
  Age: 56 Year
  Sex: Female
  Weight: 111.1313 kg

DRUGS (1)
  1. LEVAQUIN [Suspect]
     Indication: STAPHYLOCOCCAL INFECTION
     Dosage: 1 DAILY
     Dates: start: 20080915, end: 20080918

REACTIONS (4)
  - ARTHRALGIA [None]
  - HEADACHE [None]
  - MUSCULAR WEAKNESS [None]
  - PARAESTHESIA [None]
